FAERS Safety Report 8842268 (Version 1)
Quarter: 2012Q4

REPORT INFORMATION
  Report Type: Report from Study
  Country: JP (occurrence: JP)
  Receive Date: 20121016
  Receipt Date: 20121016
  Transmission Date: 20130627
  Serious: Yes (Hospitalization)
  Sender: FDA-Public Use
  Company Number: JP-VERTEX PHARMACEUTICAL INC.-2012-022774

PATIENT
  Age: 68 Year
  Sex: Male

DRUGS (13)
  1. VX-950 [Suspect]
     Indication: HEPATITIS C
     Dosage: 1500 mg, qd
     Route: 048
     Dates: start: 20120817
  2. VX-950 [Suspect]
     Dosage: UNK
     Route: 048
     Dates: end: 20121003
  3. VX-950 [Suspect]
     Dosage: 750 UNK, UNK
     Route: 048
     Dates: start: 20121004
  4. REBETOL [Concomitant]
     Dosage: 800 mg, qd
     Route: 048
     Dates: start: 20120817, end: 20120923
  5. REBETOL [Concomitant]
     Dosage: 400 mg, qd
     Route: 048
     Dates: start: 20120924, end: 20121003
  6. REBETOL [Concomitant]
     Dosage: 200 mg, qd
     Route: 048
     Dates: start: 20121004
  7. PEGINTERFERON ALFA-2B [Concomitant]
     Dosage: 1.5 ?g, weekly
     Route: 058
     Dates: start: 20120817
  8. URSO                               /00465701/ [Concomitant]
     Dosage: 300 mg, qd
     Route: 048
     Dates: end: 20120829
  9. KINEDAK [Concomitant]
     Dosage: 150 mg, UNK
     Route: 048
     Dates: end: 20120829
  10. AMLODIN [Concomitant]
     Dosage: 5 mg, UNK
     Route: 048
  11. BLOPRESS [Concomitant]
     Dosage: 12 mg, qd
     Route: 048
  12. FLUITRAN [Concomitant]
     Dosage: 2 mg, qd
     Route: 048
  13. BAYASPIRIN [Concomitant]
     Dosage: 100 mg, UNK
     Route: 048

REACTIONS (1)
  - Anaemia [Not Recovered/Not Resolved]
